FAERS Safety Report 9385738 (Version 1)
Quarter: 2013Q3

REPORT INFORMATION
  Report Type: Other
  Country: US (occurrence: US)
  Receive Date: 20130705
  Receipt Date: 20130705
  Transmission Date: 20140515
  Serious: Yes (Other)
  Sender: FDA-Public Use
  Company Number: US-BRISTOL-MYERS SQUIBB COMPANY-19076942

PATIENT
  Sex: Female
  Weight: 1.38 kg

DRUGS (5)
  1. ETOPOSIDE [Suspect]
     Dosage: DAY 1 AND 2
     Route: 064
     Dates: start: 2007
  2. METHOTREXATE [Suspect]
     Dosage: DAY 1
     Route: 064
     Dates: start: 2007
  3. DACTINOMYCIN [Suspect]
     Dosage: DAY 1 AND 2
     Route: 064
     Dates: start: 200705
  4. CYCLOPHOSPHAMIDE [Suspect]
     Dosage: DAY 8
     Route: 064
     Dates: start: 2007
  5. VINCRISTINE SULFATE [Suspect]
     Route: 064
     Dates: start: 2007

REACTIONS (1)
  - Low birth weight baby [Unknown]
